FAERS Safety Report 11339871 (Version 1)
Quarter: 2015Q3

REPORT INFORMATION
  Report Type: Spontaneous
  Country: MY (occurrence: MY)
  Receive Date: 20150805
  Receipt Date: 20150805
  Transmission Date: 20151125
  Serious: Yes (Other)
  Sender: FDA-Public Use
  Company Number: MY-CIPLA LTD.-2015MY06215

PATIENT

DRUGS (2)
  1. ETOPOSIDE. [Suspect]
     Active Substance: ETOPOSIDE
  2. CARBOPLATIN. [Suspect]
     Active Substance: CARBOPLATIN
     Route: 065

REACTIONS (6)
  - Urinary tract infection [Unknown]
  - Device related infection [Unknown]
  - Disease progression [Unknown]
  - Febrile neutropenia [Unknown]
  - Pleural effusion [Unknown]
  - Metastases to bone [Unknown]
